APPROVED DRUG PRODUCT: CARAFATE
Active Ingredient: SUCRALFATE
Strength: 1GM/10ML
Dosage Form/Route: SUSPENSION;ORAL
Application: N019183 | Product #001 | TE Code: AB
Applicant: ABBVIE INC
Approved: Dec 16, 1993 | RLD: Yes | RS: Yes | Type: RX